FAERS Safety Report 21838490 (Version 4)
Quarter: 2023Q1

REPORT INFORMATION
  Report Type: Spontaneous
  Country: NZ (occurrence: NZ)
  Receive Date: 20230109
  Receipt Date: 20230203
  Transmission Date: 20230417
  Serious: Yes (Death, Other)
  Sender: FDA-Public Use
  Company Number: NZ-MYLANLABS-2023M1002208

PATIENT
  Sex: Male

DRUGS (12)
  1. CLOZARIL [Suspect]
     Active Substance: CLOZAPINE
     Indication: Schizophrenia
     Dosage: 75 MILLIGRAM, QD
     Route: 048
     Dates: start: 20221031, end: 20221213
  2. CLOZARIL [Suspect]
     Active Substance: CLOZAPINE
     Indication: Psychotic disorder
     Dosage: UNK
     Route: 048
     Dates: start: 20221031, end: 20221223
  3. SINEMET [Concomitant]
     Active Substance: CARBIDOPA\LEVODOPA
     Dosage: 5 X1 DAY (VARIABLE DUE TO NON-COMPLIANCE)
     Route: 048
  4. CLONAZEPAM [Concomitant]
     Active Substance: CLONAZEPAM
     Dosage: UNK
     Route: 065
  5. MIRTAZAPINE [Concomitant]
     Active Substance: MIRTAZAPINE
     Dosage: UNK
     Route: 065
  6. SENNA [Concomitant]
     Active Substance: SENNA LEAF\SENNOSIDES\SENNOSIDES A AND B
     Dosage: UNK
     Route: 065
  7. DOCUSATE [Concomitant]
     Active Substance: DOCUSATE
     Dosage: UNK
     Route: 065
  8. APOMORPHINE [Concomitant]
     Active Substance: APOMORPHINE
     Dosage: VARIABLE DOSE
     Route: 058
  9. MORPHINE [Concomitant]
     Active Substance: MORPHINE
     Dosage: 2.5 MILLIGRAM (QDS PO OR SUB CUT)
     Route: 048
  10. MORPHINE [Concomitant]
     Active Substance: MORPHINE
     Dosage: 2.5 MILLIGRAM (QDS PO OR SUB CUT)
     Route: 058
  11. LORAZEPAM [Concomitant]
     Active Substance: LORAZEPAM
     Dosage: 1-3MG DAILY PO OR IM
     Route: 030
  12. LORAZEPAM [Concomitant]
     Active Substance: LORAZEPAM
     Dosage: 1-3MG DAILY PO OR IM
     Route: 048

REACTIONS (6)
  - Myocardial infarction [Fatal]
  - Cerebrovascular accident [Fatal]
  - Delirium [Fatal]
  - Parkinson^s disease [Unknown]
  - Dementia [Unknown]
  - Treatment noncompliance [Unknown]
